FAERS Safety Report 4566931-7 (Version None)
Quarter: 2005Q1

REPORT INFORMATION
  Report Type: 
  Country: None (occurrence: None)
  Receive Date: 20050201
  Receipt Date: 20030409
  Transmission Date: 20050727
  Serious: Yes (Other)
  Sender: FDA-Public Use
  Company Number: US-BRISTOL-MYERS SQUIBB COMPANY-12244851

PATIENT
  Sex: Female

DRUGS (1)
  1. STADOL [Suspect]
     Route: 045

REACTIONS (6)
  - ABDOMINAL DISCOMFORT [None]
  - DEPENDENCE [None]
  - INSOMNIA [None]
  - NASAL CONGESTION [None]
  - NAUSEA [None]
  - RESPIRATORY DEPRESSION [None]
